FAERS Safety Report 9554054 (Version 1)
Quarter: 2013Q3

REPORT INFORMATION
  Report Type: Spontaneous
  Country: DE (occurrence: DE)
  Receive Date: 20130925
  Receipt Date: 20130925
  Transmission Date: 20140515
  Serious: Yes (Other)
  Sender: FDA-Public Use
  Company Number: PHHY2013DE105877

PATIENT
  Age: 28 Year
  Sex: Female

DRUGS (1)
  1. MIRTAZAPINE [Suspect]
     Dosage: 30 MG, PER DAY

REACTIONS (5)
  - Galactorrhoea [Recovering/Resolving]
  - Breast pain [Unknown]
  - Localised oedema [Recovering/Resolving]
  - Fatigue [Unknown]
  - Oedema peripheral [Recovering/Resolving]
